FAERS Safety Report 4456039-3 (Version None)
Quarter: 2004Q3

REPORT INFORMATION
  Report Type: 
  Country: None (occurrence: None)
  Receive Date: 20040831
  Receipt Date: 20040720
  Transmission Date: 20050211
  Serious: No
  Sender: FDA-Public Use
  Company Number: FABR-10686

PATIENT
  Age: 53 Year
  Sex: Male
  Weight: 65.5 kg

DRUGS (10)
  1. FABRAZYME [Suspect]
     Indication: FABRY'S DISEASE
     Dosage: 1 MG/KG Q2WKS IV
     Route: 042
     Dates: start: 20040206
  2. BUPIRONE [Concomitant]
  3. PHOSLO [Concomitant]
  4. ALLEGRA [Concomitant]
  5. LORAZEPAM [Concomitant]
  6. VITAMIN B COMPLEX CAP [Concomitant]
  7. VITAMIN C [Concomitant]
  8. COUMADIN [Concomitant]
  9. ACIPHEX [Concomitant]
  10. NEPHROVITE [Concomitant]

REACTIONS (9)
  - BLINDNESS UNILATERAL [None]
  - DIZZINESS [None]
  - HYPOACUSIS [None]
  - HYPOAESTHESIA [None]
  - ISCHAEMIC CEREBRAL INFARCTION [None]
  - LOSS OF CONSCIOUSNESS [None]
  - LUNG INFECTION [None]
  - TINNITUS [None]
  - TRANSIENT ISCHAEMIC ATTACK [None]
